FAERS Safety Report 5403481-X (Version None)
Quarter: 2007Q3

REPORT INFORMATION
  Report Type: 
  Country: None (occurrence: None)
  Receive Date: 20070730
  Receipt Date: 20070713
  Transmission Date: 20080115
  Serious: Yes (Hospitalization)
  Sender: FDA-Public Use
  Company Number: 002#8#2007-00119

PATIENT
  Sex: Male
  Weight: 2.9 kg

DRUGS (1)
  1. ALPRAZOLAM [Suspect]

REACTIONS (11)
  - ABNORMAL LABOUR AFFECTING FOETUS [None]
  - CAESAREAN SECTION [None]
  - DRUG EXPOSURE DURING PREGNANCY [None]
  - DRUG WITHDRAWAL SYNDROME NEONATAL [None]
  - HYPERTONIA NEONATAL [None]
  - IRRITABILITY [None]
  - NEONATAL DISORDER [None]
  - NEONATAL RESPIRATORY DISTRESS SYNDROME [None]
  - SEPSIS NEONATAL [None]
  - STREPTOCOCCAL SEPSIS [None]
  - VERTICAL INFECTION TRANSMISSION [None]
